FAERS Safety Report 7499791-5 (Version None)
Quarter: 2011Q2

REPORT INFORMATION
  Report Type: 
  Country: None (occurrence: None)
  Receive Date: 20110524
  Receipt Date: 20110517
  Transmission Date: 20111010
  Serious: Yes (Death)
  Sender: FDA-Public Use
  Company Number: JP-ROCHE-771393

PATIENT
  Age: 35 Year
  Sex: Male

DRUGS (6)
  1. VALGANCICLOVIR [Suspect]
     Route: 048
     Dates: start: 20100530, end: 20100620
  2. VALGANCICLOVIR [Suspect]
     Route: 048
     Dates: start: 20100421, end: 20100430
  3. TACROLIMUS [Concomitant]
     Dosage: DRUG NAME: GRACEPTOR
     Route: 048
  4. VALGANCICLOVIR [Suspect]
     Indication: CYTOMEGALOVIRUS INFECTION
     Route: 048
     Dates: start: 20100615, end: 20100623
  5. VALGANCICLOVIR [Suspect]
     Route: 048
     Dates: start: 20100526, end: 20100529
  6. VALGANCICLOVIR [Suspect]
     Route: 048
     Dates: start: 20100621, end: 20100624

REACTIONS (1)
  - ENCEPHALOPATHY [None]
